FAERS Safety Report 4509243-X (Version None)
Quarter: 2004Q4

REPORT INFORMATION
  Report Type: 
  Country: None (occurrence: None)
  Receive Date: 20041123
  Receipt Date: 20041019
  Transmission Date: 20050328
  Serious: Yes (Life-Threatening, Hospitalization)
  Sender: FDA-Public Use
  Company Number: US-MERCK-0410USA02972

PATIENT
  Age: 47 Year
  Sex: Male

DRUGS (3)
  1. VIOXX [Suspect]
     Indication: ARTHRITIS
     Route: 048
     Dates: start: 20010813, end: 20010907
  2. ASPIRIN [Concomitant]
     Route: 065
  3. ULTRAM [Concomitant]
     Route: 065

REACTIONS (7)
  - DIARRHOEA [None]
  - HEADACHE [None]
  - NAUSEA [None]
  - RASH [None]
  - STOMACH DISCOMFORT [None]
  - TRANSIENT ISCHAEMIC ATTACK [None]
  - WEIGHT DECREASED [None]
